FAERS Safety Report 9559134 (Version 1)
Quarter: 2013Q3

REPORT INFORMATION
  Report Type: Spontaneous
  Country: US (occurrence: US)
  Receive Date: 20130927
  Receipt Date: 20130927
  Transmission Date: 20140515
  Serious: No
  Sender: FDA-Public Use
  Company Number: US-009507513-1309USA012400

PATIENT
  Age: 45 Year
  Sex: Male

DRUGS (2)
  1. REBETOL [Suspect]
     Indication: HEPATITIS C
     Dosage: UNK
     Route: 048
     Dates: start: 20130913
  2. PEGINTRON [Suspect]
     Indication: HEPATITIS C
     Dosage: VIAL
     Dates: start: 20130913

REACTIONS (4)
  - Myalgia [Unknown]
  - Chills [Unknown]
  - Asthenia [Unknown]
  - Injection site erythema [Unknown]
